FAERS Safety Report 18294513 (Version 2)
Quarter: 2020Q3

REPORT INFORMATION
  Report Type: Spontaneous
  Country: US (occurrence: US)
  Receive Date: 20200922
  Receipt Date: 20200929
  Transmission Date: 20201103
  Serious: Yes (Life-Threatening, Hospitalization, Other)
  Sender: FDA-Public Use
  Company Number: US-MACLEODS PHARMACEUTICALS US LTD-MAC2020028109

PATIENT

DRUGS (3)
  1. VENLAFAXINE [Suspect]
     Active Substance: VENLAFAXINE HYDROCHLORIDE
     Dosage: 150 MILLIGRAM, QD, INCREASED TO, APPROXIMATELY 2 MONTHS PRIOR TO DELIVERY
     Route: 064
  2. VENLAFAXINE [Suspect]
     Active Substance: VENLAFAXINE HYDROCHLORIDE
     Indication: PRODUCT USED FOR UNKNOWN INDICATION
     Dosage: 112.5 MILLIGRAM, QD
     Route: 064
  3. VENLAFAXINE [Suspect]
     Active Substance: VENLAFAXINE HYDROCHLORIDE
     Dosage: UNK, VIA BREAST MILK
     Route: 063

REACTIONS (6)
  - Drug withdrawal syndrome neonatal [Recovered/Resolved]
  - Toxic encephalopathy [Recovered/Resolved]
  - Hypothermia [Recovered/Resolved]
  - Exposure via breast milk [Recovered/Resolved]
  - Weight decreased [Recovered/Resolved]
  - Foetal exposure during pregnancy [Recovered/Resolved]
